FAERS Safety Report 7060548-0 (Version None)
Quarter: 2010Q4

REPORT INFORMATION
  Report Type: 
  Country: None (occurrence: None)
  Receive Date: 20101025
  Receipt Date: 20101012
  Transmission Date: 20110411
  Serious: Yes (Hospitalization)
  Sender: FDA-Public Use
  Company Number: US-ELI_LILLY_AND_COMPANY-US201009004008

PATIENT
  Sex: Female

DRUGS (2)
  1. FORTEO [Suspect]
     Indication: OSTEOPOROSIS
     Dosage: 20 UG, DAILY (1/D)
     Dates: start: 20100819
  2. ANTIHYPERTENSIVES [Concomitant]

REACTIONS (5)
  - COMPRESSION FRACTURE [None]
  - FALL [None]
  - HUMERUS FRACTURE [None]
  - IMPAIRED HEALING [None]
  - SPINAL FRACTURE [None]
